FAERS Safety Report 7145000-6 (Version None)
Quarter: 2010Q4

REPORT INFORMATION
  Report Type: 
  Country: None (occurrence: None)
  Receive Date: 20101208
  Receipt Date: 20101206
  Transmission Date: 20110411
  Serious: Yes (Death)
  Sender: FDA-Public Use
  Company Number: MX-B.I. PHARMACEUTICALS,INC./RIDGEFIELD-2010-MX-00285MX

PATIENT
  Sex: Male
  Weight: 70 kg

DRUGS (3)
  1. SPIRIVA [Suspect]
     Indication: CHRONIC OBSTRUCTIVE PULMONARY DISEASE
     Dosage: ONE DAILY
     Route: 055
     Dates: start: 20100624, end: 20101009
  2. MICARDIS [Suspect]
     Indication: HYPERTENSION
     Dosage: A HALF DAILY
     Route: 048
     Dates: start: 20080101, end: 20101009
  3. METFORMIN HCL [Concomitant]
     Indication: DIABETES MELLITUS
     Dosage: THREE DAILY
     Route: 048
     Dates: start: 20050101, end: 20101009

REACTIONS (1)
  - MYOCARDIAL INFARCTION [None]
